FAERS Safety Report 20909970 (Version 2)
Quarter: 2022Q3

REPORT INFORMATION
  Report Type: Report from Study
  Country: US (occurrence: US)
  Receive Date: 20220603
  Receipt Date: 20220727
  Transmission Date: 20221026
  Serious: Yes (Hospitalization, Other)
  Sender: FDA-Public Use
  Company Number: US-TAKEDA-2022TUS034627

PATIENT
  Age: 42 Year
  Sex: Female

DRUGS (1)
  1. VEDOLIZUMAB [Suspect]
     Active Substance: VEDOLIZUMAB
     Indication: Crohn^s disease
     Dosage: 300 MILLIGRAM
     Route: 042

REACTIONS (7)
  - Pericarditis [Unknown]
  - Malaise [Unknown]
  - Illness [Unknown]
  - Stress [Unknown]
  - Panic attack [Unknown]
  - Adverse event [Unknown]
  - Confusional state [Unknown]

NARRATIVE: CASE EVENT DATE: 20220524
